FAERS Safety Report 7459876-6 (Version None)
Quarter: 2011Q2

REPORT INFORMATION
  Report Type: 
  Country: None (occurrence: None)
  Receive Date: 20110505
  Receipt Date: 20110429
  Transmission Date: 20111010
  Serious: Yes (Other)
  Sender: FDA-Public Use
  Company Number: FR-PFIZER INC-2011016055

PATIENT
  Age: 48 Year
  Sex: Female
  Weight: 76 kg

DRUGS (5)
  1. DAFALGAN [Concomitant]
     Indication: PAIN
     Dosage: 1 G, AS NEEDED
     Route: 048
  2. LAROXYL [Concomitant]
     Dosage: 25 MG (1 DF), 1X/DAY
     Route: 048
     Dates: start: 20101001
  3. TRILEPTAL [Concomitant]
     Indication: PAIN
     Dosage: 150 MG, 3X/DAY
     Route: 048
     Dates: start: 20101001
  4. SALAZOPYRINE [Suspect]
     Indication: SPONDYLITIS
     Dosage: 1000 MG, 2X/DAY
     Dates: start: 20110106, end: 20110116
  5. LEVOTHYROX [Concomitant]
     Indication: HYPOTHYROIDISM
     Dosage: 25 UG (1 DF), 1X/DAY
     Route: 048
     Dates: start: 20070701

REACTIONS (2)
  - DRUG RASH WITH EOSINOPHILIA AND SYSTEMIC SYMPTOMS [None]
  - CHEST DISCOMFORT [None]
